FAERS Safety Report 4502713-X (Version None)
Quarter: 2004Q4

REPORT INFORMATION
  Report Type: 
  Country: None (occurrence: None)
  Receive Date: 20041110
  Receipt Date: 20041026
  Transmission Date: 20050328
  Serious: Yes (Hospitalization)
  Sender: FDA-Public Use
  Company Number: 2004-BP-10748CL

PATIENT
  Age: 67 Year
  Sex: Male

DRUGS (3)
  1. SPIRIVA [Suspect]
     Indication: CHRONIC OBSTRUCTIVE AIRWAYS DISEASE
     Dosage: 18 MCG (18 MCG, 1/DAILY) IH
     Route: 055
     Dates: start: 20040715, end: 20041022
  2. SYMBICORT (BUDESONIDE AND FORMOTEROL) (AE) [Concomitant]
  3. MEDROL (METHYLPREDNISOLONE) (TA) [Concomitant]

REACTIONS (1)
  - ILEUS PARALYTIC [None]
